FAERS Safety Report 14991119 (Version 1)
Quarter: 2018Q2

REPORT INFORMATION
  Report Type: Spontaneous
  Country: BR (occurrence: BR)
  Receive Date: 20180608
  Receipt Date: 20180608
  Transmission Date: 20180711
  Serious: Yes (Hospitalization, Disabling)
  Sender: FDA-Public Use
  Company Number: BR-PFIZER INC-2018232637

PATIENT
  Age: 47 Year
  Sex: Male

DRUGS (1)
  1. TALIGLUCERASE ALFA [Suspect]
     Active Substance: TALIGLUCERASE ALFA
     Indication: GAUCHER^S DISEASE
     Dosage: 17 IU/KG EVERY 15 DAYS
     Route: 042
     Dates: start: 2010

REACTIONS (3)
  - Joint injury [Unknown]
  - Gait disturbance [Unknown]
  - Nephrolithiasis [Unknown]
